FAERS Safety Report 14720303 (Version 8)
Quarter: 2021Q4

REPORT INFORMATION
  Report Type: Report from Study
  Country: PT (occurrence: PT)
  Receive Date: 20180405
  Receipt Date: 20211018
  Transmission Date: 20220303
  Serious: Yes (Death, Hospitalization)
  Sender: FDA-Public Use
  Company Number: PT-ROCHE-2099841

PATIENT
  Age: 55 Year
  Sex: Male
  Weight: 96 kg

DRUGS (8)
  1. VEMURAFENIB [Suspect]
     Active Substance: VEMURAFENIB
     Indication: Metastatic malignant melanoma
     Dosage: TOTAL NUMBER OF TABLETS OF LAST VEMURAFENIB ADMINISTERED PRIOR TO AE ONSET: 4 TABLETS. ?DATE OF MOST
     Route: 048
     Dates: start: 20180320
  2. COBIMETINIB [Suspect]
     Active Substance: COBIMETINIB
     Indication: Metastatic malignant melanoma
     Dosage: DOSE OF LAST COBIMETINIB ADMINISTERED PRIOR TO AE ONSET: 27/MAR/2018 (60 MG)
     Route: 048
     Dates: start: 20180320
  3. LOSARTAN AND HYDROCHLOROTHIAZIDE [Concomitant]
     Active Substance: HYDROCHLOROTHIAZIDE\LOSARTAN POTASSIUM
     Indication: Hypertension
     Dates: start: 2014
  4. LEVETIRACETAM [Concomitant]
     Active Substance: LEVETIRACETAM
     Indication: Epilepsy
     Dates: start: 201712
  5. OMEPRAZOLE [Concomitant]
     Active Substance: OMEPRAZOLE
     Indication: Gastrooesophageal reflux disease
     Dates: start: 201712
  6. ZOLPIDEM [Concomitant]
     Active Substance: ZOLPIDEM TARTRATE
     Indication: Insomnia
     Dates: start: 20180412, end: 20180412
  7. OXYGEN [Concomitant]
     Active Substance: OXYGEN
     Dates: start: 20180412, end: 20180413
  8. DEXAMETHASONE [Concomitant]
     Active Substance: DEXAMETHASONE
     Dates: start: 20180214, end: 20180305

REACTIONS (1)
  - Acute kidney injury [Recovered/Resolved]

NARRATIVE: CASE EVENT DATE: 20180327
